FAERS Safety Report 25175641 (Version 2)
Quarter: 2025Q2

REPORT INFORMATION
  Report Type: Report from Study
  Country: US (occurrence: US)
  Receive Date: 20250408
  Receipt Date: 20250409
  Transmission Date: 20250717
  Serious: Yes (Hospitalization, Other)
  Sender: TAIHO ONCOLOGY INC
  Company Number: US-TAIHOP-2025-001420

PATIENT
  Sex: Male

DRUGS (2)
  1. LONSURF [Suspect]
     Active Substance: TIPIRACIL HYDROCHLORIDE\TRIFLURIDINE
     Indication: Agranulocytosis
     Dosage: CYCLE UNKNOWN
     Route: 048
     Dates: start: 202410
  2. LONSURF [Suspect]
     Active Substance: TIPIRACIL HYDROCHLORIDE\TRIFLURIDINE
     Dosage: CYCLE UNKNOWN
     Route: 048

REACTIONS (7)
  - Malnutrition [Unknown]
  - Pancytopenia [Unknown]
  - Oesophagitis ulcerative [Unknown]
  - Oesophageal stenosis [Unknown]
  - Weight decreased [Unknown]
  - Infection [Unknown]
  - Product use in unapproved indication [Unknown]
